FAERS Safety Report 7183721-X (Version None)
Quarter: 2010Q4

REPORT INFORMATION
  Report Type: 
  Country: None (occurrence: None)
  Receive Date: 20101210
  Receipt Date: 20101124
  Transmission Date: 20110411
  Serious: Yes (Other)
  Sender: FDA-Public Use
  Company Number: 2010005180

PATIENT
  Age: 89 Year
  Sex: Male
  Weight: 54.5 kg

DRUGS (4)
  1. ERLOTINIB HYDROCHLORIDE [Suspect]
     Indication: NON-SMALL CELL LUNG CANCER
     Dosage: (150 MG,QD),ORAL
     Route: 048
     Dates: start: 20090303, end: 20100308
  2. PROMAC [Concomitant]
  3. GLYSENNID [Concomitant]
  4. MUCOSTA (REBAMIPIDE) [Concomitant]

REACTIONS (3)
  - LARGE INTESTINE CARCINOMA [None]
  - RASH [None]
  - SKIN EROSION [None]
